FAERS Safety Report 23718095 (Version 1)
Quarter: 2024Q2

REPORT INFORMATION
  Report Type: Spontaneous
  Country: US (occurrence: None)
  Receive Date: 20240406
  Receipt Date: 20240406
  Transmission Date: 20240716
  Serious: No
  Sender: FDA-Public Use
  Company Number: None

PATIENT
  Age: 59 Year
  Sex: Female
  Weight: 58.5 kg

DRUGS (1)
  1. CHLORHEXIDINE [Suspect]
     Active Substance: CHLORHEXIDINE\CHLORHEXIDINE GLUCONATE
     Indication: Therapeutic skin care topical
     Dates: start: 20240330, end: 20240330

REACTIONS (4)
  - Documented hypersensitivity to administered product [None]
  - Dizziness [None]
  - Retching [None]
  - Pruritus [None]

NARRATIVE: CASE EVENT DATE: 20240330
